FAERS Safety Report 4343670-9 (Version None)
Quarter: 2004Q2

REPORT INFORMATION
  Report Type: 
  Country: None (occurrence: None)
  Receive Date: 20040421
  Receipt Date: 20040421
  Transmission Date: 20050107
  Serious: Yes (Other)
  Sender: FDA-Public Use
  Company Number: None

PATIENT
  Age: 22 Year
  Sex: Male

DRUGS (1)
  1. ALEVE [Suspect]
     Indication: HEADACHE
     Dosage: 2 TABS OF ALEVE
     Dates: start: 20040405

REACTIONS (2)
  - DYSPNOEA [None]
  - FACE OEDEMA [None]
